FAERS Safety Report 8815878 (Version 1)
Quarter: 2012Q4

REPORT INFORMATION
  Report Type: 
  Country: US (occurrence: US)
  Receive Date: 20120928
  Receipt Date: 20120928
  Transmission Date: 20130627
  Serious: Yes (Hospitalization, Other)
  Sender: FDA-Public Use
  Company Number: US-ROCHE-1126217

PATIENT
  Sex: Female

DRUGS (5)
  1. AVASTIN [Suspect]
     Indication: BREAST CANCER FEMALE
     Route: 065
  2. HERCEPTIN [Suspect]
     Indication: BREAST CANCER FEMALE
     Route: 065
  3. AROMASIN [Concomitant]
  4. NAVELBINE [Concomitant]
  5. TAXOL [Concomitant]

REACTIONS (11)
  - Pain [Unknown]
  - Metastases to spine [Unknown]
  - Metastases to bone [Unknown]
  - Metastases to bone [Unknown]
  - Diplopia [Unknown]
  - Bone pain [Unknown]
  - Tumour marker increased [Unknown]
  - Femur fracture [Unknown]
  - Back pain [Unknown]
  - Pain in extremity [Unknown]
  - Disease progression [Unknown]
